FAERS Safety Report 16469299 (Version 1)
Quarter: 2019Q3

REPORT INFORMATION
  Report Type: Spontaneous
  Country: US (occurrence: US)
  Receive Date: 20190621
  Receipt Date: 20190621
  Transmission Date: 20191004
  Serious: No
  Sender: FDA-Public Use
  Company Number: None

PATIENT

DRUGS (1)
  1. ENOXAPARIN INJECTION [Suspect]
     Active Substance: ENOXAPARIN
     Route: 058

REACTIONS (3)
  - Accidental exposure to product [None]
  - Device malfunction [None]
  - Injury associated with device [None]

NARRATIVE: CASE EVENT DATE: 20190614
